FAERS Safety Report 7998539-5 (Version None)
Quarter: 2011Q4

REPORT INFORMATION
  Report Type: 
  Country: None (occurrence: None)
  Receive Date: 20111221
  Receipt Date: 20111215
  Transmission Date: 20120403
  Serious: Yes (Life-Threatening, Hospitalization)
  Sender: FDA-Public Use
  Company Number: FR-CELGENEUS-056-C5013-11122141

PATIENT
  Sex: Male
  Weight: 83 kg

DRUGS (13)
  1. ALLOPURINOL [Concomitant]
     Route: 065
  2. FUROSEMIDE [Concomitant]
     Route: 065
  3. ACETAMINOPHEN [Concomitant]
     Dosage: 500 MILLIGRAM
     Route: 065
  4. DOCETAXEL [Suspect]
     Indication: PROSTATE CANCER
     Dosage: 75
     Route: 065
     Dates: start: 20110802
  5. DOCETAXEL [Suspect]
     Route: 065
     Dates: start: 20111125, end: 20111214
  6. HEPARIN [Concomitant]
     Indication: ATRIAL FIBRILLATION
     Route: 065
     Dates: end: 20111208
  7. OMEXEL [Concomitant]
     Route: 065
  8. PREDNISONE [Suspect]
     Indication: PROSTATE CANCER
     Dosage: 5
     Route: 065
     Dates: start: 20110802, end: 20111202
  9. DIGOXIN [Concomitant]
     Route: 065
  10. ACTONEL [Concomitant]
     Route: 065
  11. SINTROM [Concomitant]
     Indication: ATRIAL FIBRILLATION
     Route: 065
  12. LENALIDOMIDE [Suspect]
     Indication: PROSTATE CANCER
     Route: 048
     Dates: start: 20110802, end: 20111118
  13. BISOPROLOL FUMARATE [Concomitant]
     Dosage: 10 MILLIGRAM
     Route: 065

REACTIONS (4)
  - DEHYDRATION [None]
  - FEBRILE NEUTROPENIA [None]
  - HYPOTENSION [None]
  - DIARRHOEA [None]
